FAERS Safety Report 12851937 (Version 1)
Quarter: 2016Q4

REPORT INFORMATION
  Report Type: Spontaneous
  Country: FR (occurrence: FR)
  Receive Date: 20161017
  Receipt Date: 20161017
  Transmission Date: 20170207
  Serious: Yes (Other)
  Sender: FDA-Public Use
  Company Number: FR-VIIV HEALTHCARE LIMITED-FR2016GSK148130

PATIENT
  Age: 56 Year
  Sex: Female

DRUGS (12)
  1. FOLINIC ACID [Concomitant]
     Active Substance: LEUCOVORIN
  2. CELSENTRI [Suspect]
     Active Substance: MARAVIROC
     Indication: HIV INFECTION
     Dosage: 300 MG, BID
     Route: 048
     Dates: start: 20160824, end: 20160907
  3. INEXIUM [Concomitant]
     Active Substance: ESOMEPRAZOLE
     Dosage: 40 MG, UNK
  4. PENTACARINAT [Concomitant]
     Active Substance: PENTAMIDINE ISETHIONATE
  5. RETROVIR [Suspect]
     Active Substance: ZIDOVUDINE
     Indication: HIV INFECTION
     Dosage: 250 MG, BID
     Route: 048
     Dates: start: 20160727, end: 20160907
  6. ZOPHREN [Concomitant]
     Active Substance: ONDANSETRON
  7. ZELITREX [Concomitant]
     Active Substance: VALACYCLOVIR HYDROCHLORIDE
  8. DISULONE [Concomitant]
     Active Substance: DAPSONE\FERROUS OXALATE
  9. KALETRA [Concomitant]
     Active Substance: LOPINAVIR\RITONAVIR
     Dosage: UNK
     Dates: start: 20160725, end: 20160822
  10. FOSCAVIR [Suspect]
     Active Substance: FOSCARNET SODIUM
     Indication: HIV INFECTION
     Dosage: 80 MG/KG, BID
     Route: 048
     Dates: start: 20160725, end: 20160822
  11. MALOCIDE [Concomitant]
     Active Substance: PYRIMETHAMINE
  12. TIVICAY [Suspect]
     Active Substance: DOLUTEGRAVIR SODIUM
     Indication: HIV INFECTION
     Dosage: 50 MG, BID
     Route: 048
     Dates: start: 20160725, end: 20160907

REACTIONS (3)
  - Vomiting [Recovering/Resolving]
  - Genital ulceration [Recovering/Resolving]
  - Asthenia [Recovering/Resolving]

NARRATIVE: CASE EVENT DATE: 20160908
